FAERS Safety Report 12583172 (Version 2)
Quarter: 2016Q3

REPORT INFORMATION
  Report Type: Spontaneous
  Country: US (occurrence: US)
  Receive Date: 20160722
  Receipt Date: 20160912
  Transmission Date: 20161109
  Serious: No
  Sender: FDA-Public Use
  Company Number: US-GLAXOSMITHKLINE-US2016GSK100412

PATIENT
  Sex: Female

DRUGS (1)
  1. REQUIP [Suspect]
     Active Substance: ROPINIROLE HYDROCHLORIDE
     Indication: RESTLESS LEGS SYNDROME
     Dosage: UNK, U
     Route: 065
     Dates: start: 1997, end: 2002

REACTIONS (6)
  - Crime [Unknown]
  - Obsessive-compulsive disorder [Unknown]
  - Divorced [Unknown]
  - Economic problem [Unknown]
  - Gambling disorder [Unknown]
  - Imprisonment [Unknown]
